FAERS Safety Report 13352624 (Version 3)
Quarter: 2017Q2

REPORT INFORMATION
  Report Type: Spontaneous
  Country: US (occurrence: US)
  Receive Date: 20170320
  Receipt Date: 20170510
  Transmission Date: 20170830
  Serious: Yes (Hospitalization)
  Sender: FDA-Public Use
  Company Number: US-ACTELION-A-NJ2016-146181

PATIENT
  Age: 70 Year
  Sex: Female
  Weight: 103.4 kg

DRUGS (3)
  1. AMLODIPINE [Concomitant]
     Active Substance: AMLODIPINE BESYLATE
  2. VELETRI [Suspect]
     Active Substance: EPOPROSTENOL
     Indication: PULMONARY ARTERIAL HYPERTENSION
     Dosage: 30 NG/KG, PER MIN
     Route: 042
     Dates: start: 20120117
  3. WARFARIN [Concomitant]
     Active Substance: WARFARIN

REACTIONS (6)
  - Influenza [Unknown]
  - Dyspnoea [Unknown]
  - Bronchitis [Unknown]
  - Anxiety [Unknown]
  - Dizziness exertional [Unknown]
  - Chronic obstructive pulmonary disease [Unknown]
